FAERS Safety Report 19769685 (Version 2)
Quarter: 2021Q3

REPORT INFORMATION
  Report Type: Spontaneous
  Country: US (occurrence: US)
  Receive Date: 20210831
  Receipt Date: 20210928
  Transmission Date: 20211014
  Serious: Yes (Other)
  Sender: FDA-Public Use
  Company Number: US-JNJFOC-20210855825

PATIENT
  Sex: Female

DRUGS (3)
  1. NEUTROGENA ULTRA SHEER BODY MIST SUNSCREEN SPRAY SPF60 (AVOBENZONE\HOMOSALATE\OCTISALATE\OCTOCRYLENE\OXYBENZONE) [Suspect]
     Active Substance: AVOBENZONE\HOMOSALATE\OCTISALATE\OCTOCRYLENE\OXYBENZONE
     Indication: PRODUCT USED FOR UNKNOWN INDICATION
     Route: 061
  2. NTG ULTRA SHEER BODYMIST SUNSCREEN SPF30 [Concomitant]
     Indication: PROPHYLAXIS AGAINST SOLAR RADIATION
     Dosage: JUST ENOUGH TO COVER HER SKIN EVERY SUMMER AND EVERY YEAR
     Route: 061
  3. NEUTROGENA ULTRA SHEER BODY MIST SUNSCRN BR^D SPECT SPF 30 (AV\HOM\OCTI\OCTO\OX) [Concomitant]
     Active Substance: AVOBENZONE\HOMOSALATE\OCTISALATE\OCTOCRYLENE\OXYBENZONE
     Route: 061

REACTIONS (2)
  - Product distribution issue [Unknown]
  - Skin cancer [Unknown]

NARRATIVE: CASE EVENT DATE: 20210406
